FAERS Safety Report 20099361 (Version 3)
Quarter: 2022Q1

REPORT INFORMATION
  Report Type: Spontaneous
  Country: PT (occurrence: PT)
  Receive Date: 20211122
  Receipt Date: 20220127
  Transmission Date: 20220424
  Serious: Yes (Life-Threatening, Hospitalization, Other)
  Sender: FDA-Public Use
  Company Number: PT-NOVARTISPH-NVSC2021PT264390

PATIENT
  Age: 65 Year
  Sex: Male

DRUGS (2)
  1. IBUPROFEN [Suspect]
     Active Substance: IBUPROFEN
     Indication: Product used for unknown indication
     Dosage: 4 G, ONCE/SINGLE
     Route: 065
  2. ACETAMINOPHEN [Suspect]
     Active Substance: ACETAMINOPHEN
     Indication: Product used for unknown indication
     Dosage: 8 G
     Route: 065

REACTIONS (10)
  - Oesophagitis chemical [Recovering/Resolving]
  - Acute kidney injury [Recovering/Resolving]
  - Suicide attempt [Unknown]
  - Blood copper increased [Recovering/Resolving]
  - Haemolysis [Recovered/Resolved]
  - Hepatitis [Unknown]
  - Haemolytic anaemia [Recovered/Resolved]
  - Nausea [Unknown]
  - Discoloured vomit [Unknown]
  - Abdominal pain [Unknown]
